FAERS Safety Report 22269843 (Version 1)
Quarter: 2023Q2

REPORT INFORMATION
  Report Type: Spontaneous
  Country: US (occurrence: None)
  Receive Date: 20230501
  Receipt Date: 20230501
  Transmission Date: 20230722
  Serious: Yes (Other)
  Sender: FDA-Public Use
  Company Number: US-Unichem Pharmaceuticals (USA) Inc-UCM202304-000460

PATIENT
  Age: 58 Year
  Sex: Female

DRUGS (5)
  1. BACLOFEN [Suspect]
     Active Substance: BACLOFEN
     Indication: Back pain
  2. BACLOFEN [Suspect]
     Active Substance: BACLOFEN
     Dosage: POSSIBLY UP TO 90 MG/DAY
  3. OLANZAPINE [Concomitant]
     Active Substance: OLANZAPINE
     Indication: Depression
     Dosage: UNKNOWN
  4. ZIPRASIDONE [Concomitant]
     Active Substance: ZIPRASIDONE
     Indication: Depression
     Dosage: UNKNOWN
  5. RISPERIDONE [Concomitant]
     Active Substance: RISPERIDONE
     Indication: Depression
     Dosage: UNKNOWN

REACTIONS (6)
  - Drug abuse [Unknown]
  - Hallucination, auditory [Recovered/Resolved]
  - Inappropriate affect [Recovered/Resolved]
  - Thought blocking [Recovered/Resolved]
  - Poverty of thought content [Recovered/Resolved]
  - Product use in unapproved indication [Unknown]
